FAERS Safety Report 6371176-4 (Version None)
Quarter: 2009Q3

REPORT INFORMATION
  Report Type: 
  Country: None (occurrence: None)
  Receive Date: 20090923
  Receipt Date: 20071212
  Transmission Date: 20100115
  Serious: No
  Sender: FDA-Public Use
  Company Number: US-ASTRAZENECA-2006UW27816

PATIENT
  Age: 13006 Day
  Sex: Female
  Weight: 89.8 kg

DRUGS (18)
  1. SEROQUEL [Suspect]
     Indication: SCHIZOPHRENIA
     Route: 048
     Dates: start: 20000101, end: 20060101
  2. SEROQUEL [Suspect]
     Indication: DEPRESSION
     Route: 048
     Dates: start: 20000101, end: 20060101
  3. SEROQUEL [Suspect]
     Route: 048
     Dates: start: 20020114
  4. SEROQUEL [Suspect]
     Route: 048
     Dates: start: 20020114
  5. ABILIFY [Concomitant]
  6. HALDOL [Concomitant]
     Dates: start: 19980101
  7. ZYPREXA [Concomitant]
     Dates: start: 19980101, end: 20000101
  8. PRILOSEC [Concomitant]
     Route: 048
  9. GLUCOPHAGE [Concomitant]
     Dosage: 500 MG, 1000 MG
  10. LISINOPRIL [Concomitant]
  11. DIAZEPAM [Concomitant]
     Route: 048
  12. TRIMOX [Concomitant]
     Route: 048
  13. PAXIL [Concomitant]
     Route: 048
  14. GLIMEPIRIDE [Concomitant]
  15. PENICILLIN [Concomitant]
  16. LEVAQUIN [Concomitant]
  17. DIFLUCAN [Concomitant]
  18. HYDROCHLOROTHIAZIDE [Concomitant]
     Indication: HYPERTENSION

REACTIONS (25)
  - ABDOMINAL PAIN [None]
  - ANAEMIA [None]
  - ARTHRALGIA [None]
  - BRONCHITIS [None]
  - CALCULUS URINARY [None]
  - CARDIAC MURMUR [None]
  - CHEST PAIN [None]
  - DEHYDRATION [None]
  - DIABETES MELLITUS [None]
  - DIABETES MELLITUS INADEQUATE CONTROL [None]
  - DIABETIC COMPLICATION [None]
  - DYSPHAGIA [None]
  - FLANK PAIN [None]
  - GASTRITIS [None]
  - GASTROOESOPHAGEAL REFLUX DISEASE [None]
  - HYPERTENSION [None]
  - HYPOTHYROIDISM [None]
  - JOINT SWELLING [None]
  - OBESITY [None]
  - PELVIC MASS [None]
  - PHARYNGITIS [None]
  - PRURITUS [None]
  - PYELONEPHRITIS [None]
  - SCHIZOPHRENIA, PARANOID TYPE [None]
  - URINARY TRACT INFECTION [None]
